FAERS Safety Report 10399588 (Version 3)
Quarter: 2014Q3

REPORT INFORMATION
  Report Type: Spontaneous
  Country: AU (occurrence: AU)
  Receive Date: 20140821
  Receipt Date: 20140916
  Transmission Date: 20150326
  Serious: Yes (Death, Hospitalization)
  Sender: FDA-Public Use
  Company Number: AU-ACTELION-A-CH2014-103927

PATIENT
  Age: 66 Year
  Sex: Female

DRUGS (1)
  1. OPSUMIT [Suspect]
     Active Substance: MACITENTAN
     Indication: PULMONARY ARTERIAL HYPERTENSION
     Dosage: 10 MG, QD
     Route: 048
     Dates: start: 20140523

REACTIONS (7)
  - Vomiting [Unknown]
  - Constipation [Unknown]
  - Gastrointestinal hypomotility [Unknown]
  - Condition aggravated [Unknown]
  - Nausea [Unknown]
  - Terminal state [Unknown]
  - Scleroderma [Fatal]
